FAERS Safety Report 8548012-0 (Version None)
Quarter: 2012Q3

REPORT INFORMATION
  Report Type: 
  Country: None (occurrence: None)
  Receive Date: 20120729
  Receipt Date: 20120719
  Transmission Date: 20120928
  Serious: Yes (Death, Hospitalization)
  Sender: FDA-Public Use
  Company Number: PT-BRISTOL-MYERS SQUIBB COMPANY-16763500

PATIENT
  Sex: Female
  Weight: 50 kg

DRUGS (1)
  1. YERVOY [Suspect]
     Dosage: NO OF INFUSION:1

REACTIONS (2)
  - DYSPNOEA [None]
  - NEOPLASM MALIGNANT [None]
